FAERS Safety Report 5861171-3 (Version None)
Quarter: 2008Q3

REPORT INFORMATION
  Report Type: 
  Country: None (occurrence: None)
  Receive Date: 20080827
  Receipt Date: 20080820
  Transmission Date: 20090109
  Serious: Yes (Hospitalization)
  Sender: FDA-Public Use
  Company Number: US-ABBOTT-08P-163-0472014-00

PATIENT

DRUGS (1)
  1. HUMIRA [Suspect]
     Indication: CROHN'S DISEASE
     Dosage: INITIAL DOSE
     Route: 050
     Dates: start: 20080819, end: 20080819

REACTIONS (4)
  - BLOOD PRESSURE INCREASED [None]
  - CHEST DISCOMFORT [None]
  - HYPOAESTHESIA ORAL [None]
  - THROAT TIGHTNESS [None]
